FAERS Safety Report 6578388-5 (Version None)
Quarter: 2010Q1

REPORT INFORMATION
  Report Type: 
  Country: None (occurrence: None)
  Receive Date: 20100211
  Receipt Date: 20100201
  Transmission Date: 20100710
  Serious: Yes (Hospitalization)
  Sender: FDA-Public Use
  Company Number: NL-MEDIMMUNE-MEDI-0010469

PATIENT
  Sex: Male

DRUGS (2)
  1. SYNAGIS [Suspect]
     Route: 030
     Dates: start: 20091002, end: 20100104
  2. SYNAGIS [Suspect]
     Route: 030
     Dates: start: 20100201, end: 20100201

REACTIONS (5)
  - COUGH [None]
  - FLUID INTAKE REDUCED [None]
  - RHINORRHOEA [None]
  - VIRAL INFECTION [None]
  - WHEEZING [None]
